FAERS Safety Report 9175457 (Version 2)
Quarter: 2013Q2

REPORT INFORMATION
  Report Type: Spontaneous
  Country: RU (occurrence: RU)
  Receive Date: 20130320
  Receipt Date: 20130522
  Transmission Date: 20140414
  Serious: Yes (Other)
  Sender: FDA-Public Use
  Company Number: RU-BAYER-2013-028000

PATIENT
  Sex: Male

DRUGS (4)
  1. CIPROBAY [Suspect]
     Indication: RESPIRATORY TRACT INFECTION BACTERIAL
     Dosage: 500 MG, BID
  2. DIFLUCAN [Suspect]
     Indication: CANDIDA INFECTION
  3. SERETIDE [Concomitant]
  4. FORADIL [Concomitant]
     Indication: CHRONIC OBSTRUCTIVE PULMONARY DISEASE

REACTIONS (8)
  - Drug ineffective [None]
  - Asphyxia [None]
  - Sputum increased [None]
  - Dyspnoea [None]
  - Asthenia [None]
  - Pruritus [None]
  - Urticaria [None]
  - Visual impairment [None]
